FAERS Safety Report 4395054-5 (Version None)
Quarter: 2004Q3

REPORT INFORMATION
  Report Type: 
  Country: None (occurrence: None)
  Receive Date: 20040707
  Receipt Date: 20040625
  Transmission Date: 20050211
  Serious: Yes (Disabling, Other)
  Sender: FDA-Public Use
  Company Number: 2004043464

PATIENT
  Age: 32 Year
  Sex: Female

DRUGS (4)
  1. NEURONTIN [Suspect]
     Indication: EPILEPSY
  2. DILANTIN [Suspect]
     Indication: EPILEPSY
  3. PHENOBARBITAL TAB [Suspect]
     Indication: EPILEPSY
  4. ANTIEPILEPTICS (ANTIEPILEPTICS) [Suspect]
     Indication: EPILEPSY

REACTIONS (4)
  - COMPUTERISED TOMOGRAM ABNORMAL [None]
  - CONFUSIONAL STATE [None]
  - DYSARTHRIA [None]
  - MEMORY IMPAIRMENT [None]
